FAERS Safety Report 15363961 (Version 1)
Quarter: 2018Q3

REPORT INFORMATION
  Report Type: Spontaneous
  Country: US (occurrence: US)
  Receive Date: 20180831
  Receipt Date: 20180831
  Transmission Date: 20181010
  Serious: No
  Sender: FDA-Public Use
  Company Number: None

PATIENT
  Age: 59 Year
  Sex: Male

DRUGS (4)
  1. ZYTIGA [Concomitant]
     Active Substance: ABIRATERONE ACETATE
  2. TAMSULOSIN [Concomitant]
     Active Substance: TAMSULOSIN
  3. PREDNISONE TAB [Suspect]
     Active Substance: PREDNISONE
     Indication: METASTASES TO CENTRAL NERVOUS SYSTEM
     Route: 048
     Dates: start: 20180109
  4. LYRICA [Concomitant]
     Active Substance: PREGABALIN

REACTIONS (1)
  - Impaired healing [None]

NARRATIVE: CASE EVENT DATE: 20180109
